FAERS Safety Report 5547343-6 (Version None)
Quarter: 2007Q4

REPORT INFORMATION
  Report Type: 
  Country: None (occurrence: None)
  Receive Date: 20071211
  Receipt Date: 20071129
  Transmission Date: 20080405
  Serious: Yes (Other)
  Sender: FDA-Public Use
  Company Number: US-PFIZER INC-2007102324

PATIENT
  Sex: Female
  Weight: 72.727 kg

DRUGS (4)
  1. LYRICA [Suspect]
     Indication: NEURALGIA
  2. CELEBREX [Concomitant]
  3. BUPRENORPHINE HYDROCHLORIDE/NALOXONE HYDROCHLORIDE [Concomitant]
  4. ALL OTHER THERAPEUTIC PRODUCTS [Concomitant]

REACTIONS (2)
  - ALTERED STATE OF CONSCIOUSNESS [None]
  - IMPAIRED DRIVING ABILITY [None]
